FAERS Safety Report 19583787 (Version 1)
Quarter: 2021Q3

REPORT INFORMATION
  Report Type: Spontaneous
  Country: US (occurrence: US)
  Receive Date: 20210720
  Receipt Date: 20210720
  Transmission Date: 20211014
  Serious: No
  Sender: FDA-Public Use
  Company Number: US-009507513-2107USA004255

PATIENT
  Sex: Male

DRUGS (1)
  1. JANUMET [Suspect]
     Active Substance: METFORMIN HYDROCHLORIDE\SITAGLIPTIN PHOSPHATE
     Dosage: ONE TABLET TWICE A DAY

REACTIONS (2)
  - No adverse event [Unknown]
  - Product dose omission in error [Unknown]

NARRATIVE: CASE EVENT DATE: 20210708
